FAERS Safety Report 16533905 (Version 1)
Quarter: 2019Q3

REPORT INFORMATION
  Report Type: Spontaneous
  Country: US (occurrence: US)
  Receive Date: 20190704
  Receipt Date: 20190704
  Transmission Date: 20191004
  Serious: No
  Sender: FDA-Public Use
  Company Number: US-ASTRAZENECA-2019SE86432

PATIENT
  Sex: Male
  Weight: 90.7 kg

DRUGS (10)
  1. BYDUREON [Suspect]
     Active Substance: EXENATIDE
     Indication: TYPE 2 DIABETES MELLITUS
     Route: 058
  2. CARVEDILOL. [Concomitant]
     Active Substance: CARVEDILOL
  3. ENALAPRIL MALEATE. [Concomitant]
     Active Substance: ENALAPRIL MALEATE
  4. MELOXICAM. [Concomitant]
     Active Substance: MELOXICAM
  5. METFORMIN HCL [Concomitant]
     Active Substance: METFORMIN HYDROCHLORIDE
  6. NAPROXEN. [Concomitant]
     Active Substance: NAPROXEN
  7. TRAMADOL. [Concomitant]
     Active Substance: TRAMADOL
  8. AMLODIPINE [Concomitant]
     Active Substance: AMLODIPINE BESYLATE
  9. ATORVASTATIN [Concomitant]
     Active Substance: ATORVASTATIN
  10. MOTRIN [Concomitant]
     Active Substance: IBUPROFEN

REACTIONS (5)
  - Injection site pain [Unknown]
  - Incorrect dose administered by device [Unknown]
  - Intentional device misuse [Unknown]
  - Device issue [Unknown]
  - Product dose omission [Unknown]
